FAERS Safety Report 9308626 (Version 1)
Quarter: 2013Q2

REPORT INFORMATION
  Report Type: Spontaneous
  Country: US (occurrence: US)
  Receive Date: 20130524
  Receipt Date: 20130524
  Transmission Date: 20140414
  Serious: Yes (Other)
  Sender: FDA-Public Use
  Company Number: US-AMGEN-USASP2013036818

PATIENT
  Age: 33 Year
  Sex: Female

DRUGS (2)
  1. ENBREL [Suspect]
     Indication: PSORIATIC ARTHROPATHY
     Dosage: 50 MG, QWK
     Dates: start: 20031101
  2. METHOTREXATE [Concomitant]
     Dosage: UNK

REACTIONS (4)
  - Haemorrhage in pregnancy [Unknown]
  - Gestational hypertension [Unknown]
  - Hyperglycaemia [Unknown]
  - Stress [Unknown]
